FAERS Safety Report 6071853-9 (Version None)
Quarter: 2009Q1

REPORT INFORMATION
  Report Type: 
  Country: None (occurrence: None)
  Receive Date: 20090204
  Receipt Date: 20090126
  Transmission Date: 20090719
  Serious: Yes (Hospitalization)
  Sender: FDA-Public Use
  Company Number: ADR0272009

PATIENT
  Age: 66 Year
  Sex: Female
  Weight: 68.0396 kg

DRUGS (2)
  1. ALENDRONATE TABLETS 70 MG (MFR:  ARROW PHARM MALTA) [Suspect]
     Indication: OSTEOPOROSIS
     Dosage: 70 MG/WEEK, ORAL
     Route: 048
     Dates: start: 20080101, end: 20090101
  2. AMBIEN [Concomitant]

REACTIONS (2)
  - CONDITION AGGRAVATED [None]
  - NEPHROLITHIASIS [None]
